FAERS Safety Report 8049768-6 (Version None)
Quarter: 2012Q1

REPORT INFORMATION
  Report Type: 
  Country: None (occurrence: None)
  Receive Date: 20120117
  Receipt Date: 20120109
  Transmission Date: 20120608
  Serious: Yes (Other)
  Sender: FDA-Public Use
  Company Number: US-SANOFI-AVENTIS-2012SA002019

PATIENT
  Age: 75 Year
  Sex: Female
  Weight: 65.77 kg

DRUGS (8)
  1. PLAVIX [Suspect]
  2. LEVOXYL [Concomitant]
     Indication: HYPERTHYROIDISM
  3. SPIRONOLACTONE [Concomitant]
  4. ACCUPRIL [Concomitant]
     Indication: AORTIC VALVE DISEASE
  5. BRIMONIDINE TARTRATE [Concomitant]
     Indication: GLAUCOMA
  6. LIPITOR [Suspect]
     Route: 048
  7. FISH OIL [Concomitant]
     Indication: VITAMIN SUPPLEMENTATION
  8. LIPITOR [Suspect]
     Route: 048
     Dates: start: 20060101

REACTIONS (4)
  - THERAPEUTIC RESPONSE UNEXPECTED [None]
  - CATARACT OPERATION [None]
  - EYE HAEMORRHAGE [None]
  - AKINESIA [None]
